FAERS Safety Report 26100208 (Version 1)
Quarter: 2025Q4

REPORT INFORMATION
  Report Type: Spontaneous
  Country: US (occurrence: US)
  Receive Date: 20251128
  Receipt Date: 20251128
  Transmission Date: 20260117
  Serious: Yes (Hospitalization, Other)
  Sender: AZURITY PHARMACEUTICALS
  Company Number: US-AZURITY PHARMACEUTICALS, INC.-AZR202511-003525

PATIENT
  Age: 63 Year
  Sex: Male

DRUGS (1)
  1. BACLOFEN [Suspect]
     Active Substance: BACLOFEN
     Indication: Muscle spasticity
     Dosage: UNK
     Route: 037

REACTIONS (6)
  - Cardiac arrest [Unknown]
  - Cardiac failure [Unknown]
  - Renal failure [Unknown]
  - Respiratory failure [Unknown]
  - Toxicity to various agents [Unknown]
  - Overdose [Unknown]
